FAERS Safety Report 12314180 (Version 1)
Quarter: 2016Q2

REPORT INFORMATION
  Report Type: Spontaneous
  Country: US (occurrence: None)
  Receive Date: 20160427
  Receipt Date: 20160427
  Transmission Date: 20160815
  Serious: Yes (Hospitalization, Other)
  Sender: FDA-Public Use
  Company Number: None

PATIENT
  Age: 7 Year
  Sex: Female
  Weight: 21.34 kg

DRUGS (3)
  1. FLONASE [Concomitant]
     Active Substance: FLUTICASONE PROPIONATE
  2. MIRTAZEPINE [Concomitant]
     Active Substance: MIRTAZAPINE
  3. QUILLIVANT XR [Suspect]
     Active Substance: METHYLPHENIDATE HYDROCHLORIDE
     Indication: ATTENTION DEFICIT/HYPERACTIVITY DISORDER
     Route: 048

REACTIONS (13)
  - Tachypnoea [None]
  - Blood creatine phosphokinase increased [None]
  - Scratch [None]
  - Ammonia increased [None]
  - Hallucination, visual [None]
  - Tachycardia [None]
  - Seizure [None]
  - Wrong technique in product usage process [None]
  - Accidental exposure to product [None]
  - Liver function test increased [None]
  - Headache [None]
  - Head injury [None]
  - Hypertension [None]

NARRATIVE: CASE EVENT DATE: 20151205
